FAERS Safety Report 6072102-8 (Version None)
Quarter: 2009Q1

REPORT INFORMATION
  Report Type: 
  Country: None (occurrence: None)
  Receive Date: 20090210
  Receipt Date: 20090126
  Transmission Date: 20090719
  Serious: Yes (Hospitalization)
  Sender: FDA-Public Use
  Company Number: SE-PURDUE-GBR_2009_0004831

PATIENT
  Age: 71 Year
  Sex: Male

DRUGS (12)
  1. MORPHINE SULFATE [Suspect]
     Indication: PROSTATE CANCER
     Route: 048
     Dates: end: 20081016
  2. COZAAR [Suspect]
     Indication: HYPERTENSION
     Route: 048
     Dates: end: 20081016
  3. PRIMPERAN                          /00041901/ [Concomitant]
     Route: 065
  4. MOVICOL                            /01053601/ [Concomitant]
     Route: 048
  5. OMEPRAZOLE [Concomitant]
     Route: 065
  6. DICLOFENAC [Suspect]
     Indication: PROSTATE CANCER
     Route: 048
     Dates: end: 20081016
  7. FELODIPINE [Concomitant]
     Route: 065
  8. SIMVASTATIN [Concomitant]
     Route: 065
  9. LASIX [Concomitant]
     Dosage: 30 MG, UNK
     Route: 065
  10. PROCREN [Concomitant]
     Route: 065
  11. SODIUM PICOSULFATE [Concomitant]
     Dosage: 7.5 MG/ML, UNK
     Route: 048
  12. OXYCONTIN [Concomitant]

REACTIONS (4)
  - CONFUSIONAL STATE [None]
  - DIARRHOEA [None]
  - DRUG INTERACTION [None]
  - RENAL FAILURE [None]
